FAERS Safety Report 5909477-3 (Version None)
Quarter: 2008Q4

REPORT INFORMATION
  Report Type: 
  Country: None (occurrence: None)
  Receive Date: 20081001
  Receipt Date: 20080725
  Transmission Date: 20090506
  Serious: Yes (Other)
  Sender: FDA-Public Use
  Company Number: 2008EU001494

PATIENT
  Age: 2 Year
  Sex: Male
  Weight: 16 kg

DRUGS (6)
  1. PROGRAF [Suspect]
     Indication: LIVER TRANSPLANT
     Dosage: 0.7 MG, UID/QD, ORAL
     Route: 048
     Dates: start: 20050801, end: 20070917
  2. CELLCEPT [Concomitant]
  3. MABTHERA (RITUXIMAB) [Concomitant]
  4. TEGELINE (IMMUNOGLOBULIN) [Concomitant]
  5. ASPEGIC 325 [Concomitant]
  6. NASONEX [Concomitant]

REACTIONS (11)
  - ANGIOEDEMA [None]
  - ASTHMA [None]
  - BRONCHITIS [None]
  - DERMATITIS ATOPIC [None]
  - EAR INFECTION [None]
  - FOOD ALLERGY [None]
  - LUNG DISORDER [None]
  - MULTIPLE ALLERGIES [None]
  - NASOPHARYNGITIS [None]
  - RHINITIS [None]
  - SNORING [None]
